FAERS Safety Report 13976601 (Version 1)
Quarter: 2017Q3

REPORT INFORMATION
  Report Type: Spontaneous
  Country: US (occurrence: US)
  Receive Date: 20170914
  Receipt Date: 20170914
  Transmission Date: 20171128
  Serious: Yes (Other)
  Sender: FDA-Public Use
  Company Number: US-LUNDBECK-DKLU2037059

PATIENT
  Sex: Male

DRUGS (1)
  1. NORTHERA [Suspect]
     Active Substance: DROXIDOPA
     Indication: PRODUCT USED FOR UNKNOWN INDICATION
     Dosage: SCHEDULE C
     Route: 065

REACTIONS (9)
  - Atrial tachycardia [Unknown]
  - Dizziness [Unknown]
  - Presyncope [Unknown]
  - Chest pain [Unknown]
  - Dyspnoea [Unknown]
  - Atrial flutter [Unknown]
  - Fatigue [Unknown]
  - Heart rate irregular [Unknown]
  - Headache [Unknown]
